FAERS Safety Report 14436710 (Version 1)
Quarter: 2018Q1

REPORT INFORMATION
  Report Type: Spontaneous
  Country: US (occurrence: US)
  Receive Date: 20180125
  Receipt Date: 20180125
  Transmission Date: 20180509
  Serious: Yes (Hospitalization)
  Sender: FDA-Public Use
  Company Number: US-UNITED THERAPEUTICS-UNT-2017-009523

PATIENT
  Sex: Female

DRUGS (3)
  1. REMODULIN [Suspect]
     Active Substance: TREPROSTINIL
     Indication: PULMONARY ARTERIAL HYPERTENSION
     Dosage: 0.0275 ?G/KG, CONTINUING
     Route: 058
     Dates: start: 20170524
  2. REMODULIN [Suspect]
     Active Substance: TREPROSTINIL
     Dosage: 0.03625 ?G/KG, CONTINUING
     Route: 058
  3. REMODULIN [Suspect]
     Active Substance: TREPROSTINIL
     Dosage: 0.03275 ?G/KG, CONTINUING
     Route: 058
     Dates: start: 20170616

REACTIONS (4)
  - Infusion site infection [Unknown]
  - Fluid retention [Not Recovered/Not Resolved]
  - Infusion site cellulitis [Unknown]
  - Drug dose omission [Unknown]

NARRATIVE: CASE EVENT DATE: 2017
